FAERS Safety Report 12294186 (Version 1)
Quarter: 2016Q2

REPORT INFORMATION
  Report Type: Spontaneous
  Country: US (occurrence: US)
  Receive Date: 20160422
  Receipt Date: 20160422
  Transmission Date: 20160815
  Serious: Yes (Hospitalization)
  Sender: FDA-Public Use
  Company Number: US-BEH-2016061347

PATIENT
  Age: 36 Year
  Sex: Male
  Weight: 27 kg

DRUGS (25)
  1. TOBI [Concomitant]
     Active Substance: TOBRAMYCIN
  2. POTASSIUM CL [Concomitant]
     Active Substance: POTASSIUM CHLORIDE
  3. HIZENTRA [Suspect]
     Active Substance: HUMAN IMMUNOGLOBULIN G
     Indication: CONGENITAL HYPOGAMMAGLOBULINAEMIA
  4. PROTONIX [Concomitant]
     Active Substance: PANTOPRAZOLE SODIUM
  5. ACETAMINOPHEN. [Concomitant]
     Active Substance: ACETAMINOPHEN
  6. LIDOCAINE / PRILOCAINE [Concomitant]
  7. ALLOPURINOL. [Concomitant]
     Active Substance: ALLOPURINOL
  8. HYCODAN [Concomitant]
     Active Substance: HOMATROPINE METHYLBROMIDE\HYDROCODONE BITARTRATE
  9. TRAMADOL. [Concomitant]
     Active Substance: TRAMADOL
  10. VIACTIV MULTI-VITAMIN [Concomitant]
  11. ACYCLOVIR. [Concomitant]
     Active Substance: ACYCLOVIR
  12. FERROUS SULFATE. [Concomitant]
     Active Substance: FERROUS SULFATE
  13. IMODIUM A-D [Concomitant]
     Active Substance: LOPERAMIDE HYDROCHLORIDE
  14. LANSOPRAZOLE. [Concomitant]
     Active Substance: LANSOPRAZOLE
  15. CALCITROL [Concomitant]
     Active Substance: CALCITRIOL
  16. SYNTHROID [Concomitant]
     Active Substance: LEVOTHYROXINE SODIUM
  17. HIZENTRA [Suspect]
     Active Substance: HUMAN IMMUNOGLOBULIN G
  18. HIZENTRA [Suspect]
     Active Substance: HUMAN IMMUNOGLOBULIN G
     Route: 058
     Dates: start: 20100611
  19. ASPIRIN. [Concomitant]
     Active Substance: ASPIRIN
  20. PERCOCET [Concomitant]
     Active Substance: ACETAMINOPHEN\OXYCODONE HYDROCHLORIDE
  21. CEFDINIR. [Concomitant]
     Active Substance: CEFDINIR
  22. LOVENOX [Concomitant]
     Active Substance: ENOXAPARIN SODIUM
  23. DIPHENHYDRAMINE. [Concomitant]
     Active Substance: DIPHENHYDRAMINE
  24. EPIPEN [Concomitant]
     Active Substance: EPINEPHRINE
  25. MAGNESIUM GLUCONATE [Concomitant]
     Active Substance: MAGNESIUM GLUCONATE

REACTIONS (5)
  - Electrolyte imbalance [Unknown]
  - Bronchitis [Unknown]
  - Pneumonia [Unknown]
  - Cellulitis [Unknown]
  - Dehydration [Unknown]

NARRATIVE: CASE EVENT DATE: 20160309
